FAERS Safety Report 6117861-0 (Version None)
Quarter: 2009Q1

REPORT INFORMATION
  Report Type: 
  Country: None (occurrence: None)
  Receive Date: 20090314
  Receipt Date: 20090130
  Transmission Date: 20090719
  Serious: No
  Sender: FDA-Public Use
  Company Number: US-ABBOTT-09P-163-0501111-00

PATIENT
  Sex: Female
  Weight: 79.45 kg

DRUGS (4)
  1. HUMIRA [Suspect]
     Indication: COLITIS
     Route: 058
     Dates: start: 20081001
  2. PROTONIX [Concomitant]
     Indication: GASTROOESOPHAGEAL REFLUX DISEASE
     Route: 048
  3. CODEINE [Concomitant]
     Indication: DIARRHOEA
     Route: 048
  4. TINCTURE OF OPIUM [Concomitant]
     Indication: DIARRHOEA
     Dosage: 10MG/ML
     Route: 048

REACTIONS (1)
  - INJECTION SITE PAIN [None]
